FAERS Safety Report 7158447-9 (Version None)
Quarter: 2010Q4

REPORT INFORMATION
  Report Type: 
  Country: None (occurrence: None)
  Receive Date: 20101214
  Receipt Date: 20100527
  Transmission Date: 20110411
  Serious: No
  Sender: FDA-Public Use
  Company Number: US-ASTRAZENECA-2010SE24675

PATIENT

DRUGS (3)
  1. CRESTOR [Suspect]
     Route: 048
  2. CRESTOR [Interacting]
     Route: 048
  3. COUMADIN [Interacting]

REACTIONS (2)
  - DRUG INTERACTION [None]
  - LOW DENSITY LIPOPROTEIN INCREASED [None]
